FAERS Safety Report 19609877 (Version 2)
Quarter: 2021Q3

REPORT INFORMATION
  Report Type: Spontaneous
  Country: US (occurrence: US)
  Receive Date: 20210726
  Receipt Date: 20210819
  Transmission Date: 20211014
  Serious: Yes (Death, Hospitalization, Other)
  Sender: FDA-Public Use
  Company Number: US-CATALYST PHARMACEUTICALS, INC-2021CAT00339

PATIENT
  Age: 75 Year
  Sex: Male
  Weight: 71.5 kg

DRUGS (3)
  1. FIRDAPSE [Suspect]
     Active Substance: AMIFAMPRIDINE PHOSPHATE
     Dosage: 20 MG, 4X/DAY
     Route: 048
     Dates: end: 20210717
  2. FIRDAPSE [Suspect]
     Active Substance: AMIFAMPRIDINE PHOSPHATE
     Dosage: 15 MG, 3X/DAY
     Route: 048
  3. FIRDAPSE [Suspect]
     Active Substance: AMIFAMPRIDINE PHOSPHATE
     Indication: MYASTHENIC SYNDROME
     Dosage: 5 MG, 3X/DAY AND INCREASE BY 5 MG EVERY 3 DAYS UNTIL AT 15 MG 3X/DAY
     Route: 048
     Dates: start: 202104

REACTIONS (22)
  - Proteus infection [Unknown]
  - Pneumonia [Unknown]
  - Acute kidney injury [Unknown]
  - Pleural effusion [Unknown]
  - Atelectasis [Unknown]
  - Metabolic acidosis [Unknown]
  - Urinary tract infection [Unknown]
  - Abdominal pain [Unknown]
  - Cardiogenic shock [Fatal]
  - Acute respiratory failure [Recovered/Resolved]
  - Haemoptysis [Unknown]
  - Hepatojugular reflux [Unknown]
  - Cardiac failure congestive [Unknown]
  - Non-small cell lung cancer metastatic [Not Recovered/Not Resolved]
  - Tachypnoea [Unknown]
  - Pulmonary mass [Unknown]
  - Lethargy [Unknown]
  - Liver function test increased [Unknown]
  - Aspiration [Unknown]
  - Rales [Unknown]
  - Septic shock [Fatal]
  - Pulmonary embolism [Unknown]

NARRATIVE: CASE EVENT DATE: 2021
